FAERS Safety Report 19773390 (Version 1)
Quarter: 2021Q3

REPORT INFORMATION
  Report Type: Spontaneous
  Country: CN (occurrence: CN)
  Receive Date: 20210901
  Receipt Date: 20210901
  Transmission Date: 20211014
  Serious: Yes (Other)
  Sender: FDA-Public Use
  Company Number: CN-PFIZER INC-202101083947

PATIENT
  Age: 47 Year
  Sex: Male
  Weight: 66 kg

DRUGS (1)
  1. SOLU?MEDROL [Suspect]
     Active Substance: METHYLPREDNISOLONE SODIUM SUCCINATE
     Indication: THERAPEUTIC PROCEDURE
     Dosage: 1 DF, 2X/DAY
     Route: 041
     Dates: start: 20210729, end: 20210813

REACTIONS (4)
  - Osteonecrosis [Unknown]
  - Osteoporosis [Unknown]
  - Arthralgia [Unknown]
  - Blood calcium decreased [Unknown]

NARRATIVE: CASE EVENT DATE: 20210809
